FAERS Safety Report 18643104 (Version 2)
Quarter: 2020Q4

REPORT INFORMATION
  Report Type: Report from Study
  Country: CH (occurrence: CH)
  Receive Date: 20201221
  Receipt Date: 20201230
  Transmission Date: 20210114
  Serious: Yes (Hospitalization)
  Sender: FDA-Public Use
  Company Number: CH-MYLANLABS-2020M1104121

PATIENT
  Age: 6 Year
  Sex: Female

DRUGS (12)
  1. IBUPROFEN. [Suspect]
     Active Substance: IBUPROFEN
     Indication: ANALGESIC THERAPY
  2. CHLORAL HYDRATE [Concomitant]
     Active Substance: CHLORAL HYDRATE
     Indication: SLEEP DISORDER
     Route: 065
  3. TRAMADOL. [Concomitant]
     Active Substance: TRAMADOL
     Indication: SMALL FIBRE NEUROPATHY
     Route: 065
  4. PARACETAMOL [Suspect]
     Active Substance: ACETAMINOPHEN
     Indication: ANALGESIC THERAPY
  5. MEXILETINE [Concomitant]
     Active Substance: MEXILETINE
     Indication: SMALL FIBRE NEUROPATHY
     Route: 065
  6. IBUPROFEN. [Suspect]
     Active Substance: IBUPROFEN
     Indication: SMALL FIBRE NEUROPATHY
     Route: 065
  7. MORPHINE [Concomitant]
     Active Substance: MORPHINE
     Indication: SMALL FIBRE NEUROPATHY
     Route: 065
  8. CARBAMAZEPINE. [Concomitant]
     Active Substance: CARBAMAZEPINE
     Indication: SMALL FIBRE NEUROPATHY
     Route: 065
  9. CHLORPROMAZINE. [Concomitant]
     Active Substance: CHLORPROMAZINE
     Indication: SLEEP DISORDER
     Route: 065
  10. GABAPENTIN. [Concomitant]
     Active Substance: GABAPENTIN
     Indication: SMALL FIBRE NEUROPATHY
     Route: 065
  11. PARACETAMOL [Suspect]
     Active Substance: ACETAMINOPHEN
     Indication: SMALL FIBRE NEUROPATHY
     Route: 065
  12. ACETYLSALICYLIC ACID [Concomitant]
     Active Substance: ASPIRIN
     Indication: SMALL FIBRE NEUROPATHY
     Route: 065

REACTIONS (1)
  - Drug ineffective [Unknown]
